FAERS Safety Report 21128385 (Version 3)
Quarter: 2022Q3

REPORT INFORMATION
  Report Type: Spontaneous
  Country: US (occurrence: US)
  Receive Date: 20220725
  Receipt Date: 20220824
  Transmission Date: 20221027
  Serious: No
  Sender: FDA-Public Use
  Company Number: US-PFIZER INC-202200996454

PATIENT
  Age: 35 Year
  Sex: Female
  Weight: 68.04 kg

DRUGS (1)
  1. DEPO-ESTRADIOL [Suspect]
     Active Substance: ESTRADIOL CYPIONATE
     Indication: Menopause
     Dosage: EVERY TWO WEEKS, 5 MG/5 ML

REACTIONS (2)
  - Emotional distress [Unknown]
  - Product dose omission issue [Unknown]
